FAERS Safety Report 5244340-5 (Version None)
Quarter: 2007Q1

REPORT INFORMATION
  Report Type: 
  Country: None (occurrence: None)
  Receive Date: 20070222
  Receipt Date: 20070209
  Transmission Date: 20070707
  Serious: Yes (Hospitalization, Other)
  Sender: FDA-Public Use
  Company Number: US-KINGPHARMUSA00001-K200700160

PATIENT

DRUGS (7)
  1. ALTACE [Suspect]
     Indication: DRUG USE FOR UNKNOWN INDICATION
     Dosage: 2.5 MG, UNK
     Route: 048
     Dates: end: 20070120
  2. ALTACE [Suspect]
     Dosage: 2.5 MG, UNK
     Route: 048
     Dates: start: 20070127, end: 20070128
  3. BACTRIM [Suspect]
     Indication: DRUG USE FOR UNKNOWN INDICATION
     Dates: end: 20070120
  4. CLAVENTIN                          /00973701/ [Suspect]
     Indication: DRUG USE FOR UNKNOWN INDICATION
     Dates: end: 20070120
  5. LOVENOX [Concomitant]
  6. MOPRAL                             /00661201/ [Concomitant]
  7. LASILIX                            /00032601/ [Concomitant]

REACTIONS (10)
  - ALANINE AMINOTRANSFERASE INCREASED [None]
  - ASPARTATE AMINOTRANSFERASE INCREASED [None]
  - BLOOD ALKALINE PHOSPHATASE INCREASED [None]
  - BLOOD BILIRUBIN INCREASED [None]
  - CYTOLYTIC HEPATITIS [None]
  - DUODENAL ULCER [None]
  - GAMMA-GLUTAMYLTRANSFERASE INCREASED [None]
  - HEPATITIS [None]
  - HEPATITIS CHOLESTATIC [None]
  - PERITONITIS [None]
